FAERS Safety Report 16565071 (Version 1)
Quarter: 2019Q3

REPORT INFORMATION
  Report Type: Spontaneous
  Country: IT (occurrence: IT)
  Receive Date: 20190712
  Receipt Date: 20190712
  Transmission Date: 20191004
  Serious: Yes (Hospitalization)
  Sender: FDA-Public Use
  Company Number: IT-BAYER-2019-124538

PATIENT
  Age: 25 Year
  Sex: Female

DRUGS (1)
  1. CIPROXIN 1000 MG [Suspect]
     Active Substance: CIPROFLOXACIN
     Indication: CYSTITIS
     Dosage: 1000 MG, QD
     Route: 048

REACTIONS (7)
  - Angioedema [Recovering/Resolving]
  - Feeling hot [Recovering/Resolving]
  - Bronchospasm [Recovering/Resolving]
  - Paraesthesia oral [Recovering/Resolving]
  - Anaphylactic reaction [Recovering/Resolving]
  - Erythema [Recovering/Resolving]
  - Hyperaemia [Recovering/Resolving]

NARRATIVE: CASE EVENT DATE: 20170909
